FAERS Safety Report 19318856 (Version 2)
Quarter: 2021Q2

REPORT INFORMATION
  Report Type: Spontaneous
  Country: IL (occurrence: IL)
  Receive Date: 20210527
  Receipt Date: 20210603
  Transmission Date: 20210717
  Serious: Yes (Other)
  Sender: FDA-Public Use
  Company Number: IL-BRACCO-2021IL02148

PATIENT
  Age: 30 Year
  Sex: Female

DRUGS (3)
  1. SONOVUE [Suspect]
     Active Substance: SULFUR HEXAFLUORIDE
     Indication: DIAGNOSTIC PROCEDURE
     Dosage: 4.8 ML, SINGLE
  2. SONOVUE [Suspect]
     Active Substance: SULFUR HEXAFLUORIDE
     Indication: DIAGNOSTIC PROCEDURE
     Dosage: 4.8 ML, SINGLE
  3. SONOVUE [Suspect]
     Active Substance: SULFUR HEXAFLUORIDE
     Indication: DIAGNOSTIC PROCEDURE
     Dosage: 4.8 ML, SINGLE

REACTIONS (6)
  - Asphyxia [Recovered/Resolved]
  - Anxiety [Recovered/Resolved]
  - Asthenia [Recovered/Resolved]
  - Abdominal pain [Recovered/Resolved]
  - Hypoaesthesia [Recovered/Resolved]
  - Hot flush [Recovered/Resolved]

NARRATIVE: CASE EVENT DATE: 20210322
